FAERS Safety Report 6934916-9 (Version None)
Quarter: 2010Q3

REPORT INFORMATION
  Report Type: 
  Country: None (occurrence: None)
  Receive Date: 20100821
  Receipt Date: 20100810
  Transmission Date: 20110219
  Serious: No
  Sender: FDA-Public Use
  Company Number: PHHO2010AU11877

PATIENT
  Sex: Male

DRUGS (3)
  1. DIOVAN T30230+ [Suspect]
     Indication: HYPERTENSION
     Dosage: 80MG
  2. EXFORGE [Suspect]
     Indication: HYPERTENSION
  3. AMOXIL [Concomitant]

REACTIONS (1)
  - AMNESIA [None]
